FAERS Safety Report 7190543-2 (Version None)
Quarter: 2010Q4

REPORT INFORMATION
  Report Type: 
  Country: None (occurrence: None)
  Receive Date: 20101221
  Receipt Date: 20101221
  Transmission Date: 20110411
  Serious: No
  Sender: FDA-Public Use
  Company Number: None

PATIENT
  Age: 48 Year
  Sex: Female
  Weight: 56.6996 kg

DRUGS (3)
  1. CLONAZEPAM [Suspect]
     Indication: INSOMNIA
     Dosage: 0.5MG QHS PO
     Route: 048
     Dates: start: 20101207, end: 20101216
  2. LEXAPRO [Concomitant]
  3. SEASONIQUE [Concomitant]

REACTIONS (1)
  - URTICARIA [None]
